FAERS Safety Report 5473506-4 (Version None)
Quarter: 2007Q3

REPORT INFORMATION
  Report Type: 
  Country: None (occurrence: None)
  Receive Date: 20070830
  Receipt Date: 20070131
  Transmission Date: 20080115
  Serious: Yes (Life-Threatening, Hospitalization)
  Sender: FDA-Public Use
  Company Number: KADN20070035

PATIENT
  Sex: Male

DRUGS (9)
  1. KADIAN [Suspect]
  2. HYDROMORPHONE HCL [Suspect]
  3. FENTANYL CITRATE [Suspect]
  4. CLONIDINE HCL [Suspect]
  5. NORTRIPTYLINE HCL [Suspect]
  6. LISINOPRIL [Suspect]
  7. TEMAZEPAM [Suspect]
  8. DIVALPROEX SODIUM [Suspect]
  9. LANSOPRAZOLE [Suspect]

REACTIONS (1)
  - SUICIDE ATTEMPT [None]
